FAERS Safety Report 4483187-4 (Version None)
Quarter: 2004Q3

REPORT INFORMATION
  Report Type: 
  Country: None (occurrence: None)
  Receive Date: 20040921
  Receipt Date: 20040611
  Transmission Date: 20050211
  Serious: Yes (Hospitalization)
  Sender: FDA-Public Use
  Company Number: 163-20785-04060350

PATIENT
  Age: 54 Year
  Sex: Female
  Weight: 155.5838 kg

DRUGS (2)
  1. THALOMID [Suspect]
     Indication: COLORECTAL CANCER METASTATIC
     Dosage: 400 MG, QHS, ORAL
     Route: 048
     Dates: start: 20040501
  2. XELODA [Suspect]
     Indication: COLORECTAL CANCER METASTATIC
     Dosage: 2000 MG/M2 DAILY, ORAL
     Route: 048
     Dates: start: 20040501

REACTIONS (2)
  - BLOOD GLUCOSE DECREASED [None]
  - SYNCOPE [None]
